FAERS Safety Report 4548570-7 (Version None)
Quarter: 2005Q1

REPORT INFORMATION
  Report Type: 
  Country: None (occurrence: None)
  Receive Date: 20050106
  Receipt Date: 20041228
  Transmission Date: 20050727
  Serious: Yes (Other)
  Sender: FDA-Public Use
  Company Number: 200416345BCC

PATIENT
  Age: 52 Year
  Sex: Female

DRUGS (2)
  1. ALEVE [Suspect]
  2. ASPIRIN [Suspect]

REACTIONS (1)
  - CEREBROVASCULAR ACCIDENT [None]
